FAERS Safety Report 10179701 (Version 1)
Quarter: 2014Q2

REPORT INFORMATION
  Report Type: Spontaneous
  Country: US (occurrence: US)
  Receive Date: 20140519
  Receipt Date: 20140519
  Transmission Date: 20141212
  Serious: No
  Sender: FDA-Public Use
  Company Number: US-PFIZER INC-2014133343

PATIENT
  Age: 77 Year
  Sex: Female
  Weight: 65.76 kg

DRUGS (5)
  1. LIPITOR [Suspect]
     Dosage: UNK
  2. GEMFIBROZIL [Suspect]
     Dosage: UNK
  3. SEPTRA [Suspect]
     Dosage: UNK
  4. VERELAN [Suspect]
     Dosage: UNK
  5. VYTORIN [Suspect]
     Dosage: UNK

REACTIONS (1)
  - Drug hypersensitivity [Unknown]
